FAERS Safety Report 5124481-3 (Version None)
Quarter: 2006Q4

REPORT INFORMATION
  Report Type: 
  Country: None (occurrence: None)
  Receive Date: 20061006
  Receipt Date: 20061003
  Transmission Date: 20070319
  Serious: Yes (Death, Life-Threatening)
  Sender: FDA-Public Use
  Company Number: B0437964A

PATIENT
  Age: 45 Year
  Sex: Male

DRUGS (3)
  1. COMBIVIR [Suspect]
     Indication: HIV INFECTION
     Dosage: 1 TABLET/TWICE PER DAY/ORAL
     Route: 048
     Dates: start: 20060607, end: 20060907
  2. TENOFOVIR (TENOFOVIR) [Suspect]
     Indication: HIV INFECTION
     Dosage: 300 MG/PER DAY/ORAL
     Route: 048
     Dates: start: 20031023
  3. FLUCONAZOLE [Concomitant]

REACTIONS (12)
  - ANAEMIA [None]
  - CONFUSIONAL STATE [None]
  - CONVULSION [None]
  - DISSEMINATED TUBERCULOSIS [None]
  - LYMPHOCYTE COUNT DECREASED [None]
  - MALAISE [None]
  - MENINGITIS TUBERCULOUS [None]
  - NEUTROPENIA [None]
  - PLATELET COUNT DECREASED [None]
  - PULMONARY TUBERCULOSIS [None]
  - PYREXIA [None]
  - WHITE BLOOD CELL COUNT DECREASED [None]
